FAERS Safety Report 4843606-8 (Version None)
Quarter: 2005Q4

REPORT INFORMATION
  Report Type: 
  Country: None (occurrence: None)
  Receive Date: 20051202
  Receipt Date: 20050119
  Transmission Date: 20060501
  Serious: No
  Sender: FDA-Public Use
  Company Number: 200510279JP

PATIENT
  Age: 51 Year
  Sex: Female

DRUGS (7)
  1. TAXOTERE [Suspect]
     Indication: BREAST CANCER METASTATIC
     Dosage: DOSE: EVERY 3-4WEEKS
     Route: 041
     Dates: start: 20030908, end: 20031113
  2. TAXOTERE [Suspect]
     Route: 041
     Dates: start: 20031211
  3. KYTRIL [Concomitant]
     Dosage: DOSE: 1 AMPULE/3-4WEEKS
     Route: 042
     Dates: start: 20030918
  4. SOLU-MEDROL [Concomitant]
     Dosage: DOSE: 3TIMES, EVERY 3-4 WEEKS
     Route: 042
     Dates: start: 20030918, end: 20031113
  5. DOXORUBICIN HCL [Concomitant]
     Indication: BREAST CANCER METASTATIC
     Dosage: DOSE: 3TIMES, EVERY 3-4WEEKS
     Route: 042
     Dates: start: 20030918, end: 20031113
  6. SOLU-CORTEF [Concomitant]
     Dosage: DOSE: 3TIMES, EVERY 3-4WEEKS
     Route: 042
     Dates: start: 20030918, end: 20031113
  7. PREDONINE [Concomitant]
     Route: 042
     Dates: start: 20031211

REACTIONS (1)
  - SCLEREMA [None]
